FAERS Safety Report 8508838-6 (Version None)
Quarter: 2012Q3

REPORT INFORMATION
  Report Type: 
  Country: None (occurrence: None)
  Receive Date: 20120713
  Receipt Date: 20120706
  Transmission Date: 20120928
  Serious: No
  Sender: FDA-Public Use
  Company Number: US-PFIZER INC-2012086559

PATIENT
  Sex: Male
  Weight: 103.8 kg

DRUGS (35)
  1. PRILOSEC [Concomitant]
     Dosage: 20 MG, 1X/DAY
     Route: 048
  2. COUMADIN [Concomitant]
     Dosage: 5 MG, AS DIRECTED
     Route: 048
  3. COUMADIN [Concomitant]
     Dosage: 3 MG, AS DIRECTED
  4. CRESTOR [Concomitant]
     Dosage: 20 MG, DAILY
     Route: 048
  5. SOMA [Concomitant]
     Dosage: 350 MG, 3X/DAY
     Route: 048
  6. ANALPRAM-HC [Concomitant]
     Dosage: 1 %, AS DIRECTED
     Route: 061
  7. AMARYL [Concomitant]
     Dosage: 4 MG, 1X/DAY
     Route: 048
  8. COUMADIN [Concomitant]
     Dosage: 1 MG, AS DIRECTED
     Route: 048
  9. LISINOPRIL [Concomitant]
     Dosage: 20 MG, DAILY
     Route: 048
  10. CALCIUM W/COLECALCIFEROL [Concomitant]
     Dosage: 500MG-200, 2X/DAY
     Route: 048
  11. CHANTIX [Concomitant]
     Dosage: 0.5 MG, 2X/DAY (DAY 4-7)
  12. CHANTIX [Concomitant]
     Dosage: 0.5 MG, 2X/DAY (DAY 8 - END OF TREATMENT)
     Route: 048
  13. VICODIN [Concomitant]
     Dosage: UNK
     Route: 048
     Dates: end: 20100202
  14. NORVASC [Concomitant]
     Dosage: UNK
     Route: 048
     Dates: end: 20100202
  15. COUMADIN [Concomitant]
     Dosage: 4 MG, AS DIRECTED
     Route: 048
  16. MINOCYCLINE HYDROCHLORIDE [Concomitant]
     Dosage: 100 MG, 2X/DAY
     Route: 048
     Dates: end: 20100223
  17. LORAZEPAM [Concomitant]
     Indication: MUSCLE SPASMS
     Dosage: 0.5 MG, Q4H AS NEEDED
     Route: 048
     Dates: end: 20100810
  18. SUTENT [Suspect]
     Indication: RENAL CELL CARCINOMA
     Dosage: 50 MG, DAILY, CYCLIC (4 WEEKS ON, THEN 2 WEEKS OFF)
     Route: 048
     Dates: start: 20100201
  19. SYNTHROID [Concomitant]
     Dosage: 100 UG, 1X/DAY
     Route: 048
  20. METOPROLOL SUCCINATE [Concomitant]
     Dosage: 25 MG, 2X/DAY
     Route: 048
  21. ACETAMINOPHEN [Concomitant]
     Dosage: 500 MG, AS NEEDED
     Route: 048
  22. HYDROCHLOROTHIAZIDE [Concomitant]
     Indication: DIURETIC THERAPY
     Dosage: 25 MG, DAILY (AS DIRECTED)
     Route: 048
     Dates: end: 20110906
  23. VALIUM [Concomitant]
     Indication: ANXIETY
     Dosage: 5 MG, AS NEEDED (Q6-8H)
     Route: 048
  24. FLONASE [Concomitant]
     Dosage: 50 UG, DAILY
     Route: 055
  25. FENOFIBRATE [Concomitant]
     Dosage: 130 MG, 1X/DAY
     Route: 048
  26. OXYCODONE HYDROCHLORIDE [Concomitant]
     Indication: PAIN
     Dosage: 5 MG, AS NEEDED (Q3-4H)
     Route: 048
     Dates: end: 20100223
  27. ASCORBIC ACID [Concomitant]
     Dosage: 1000 MG, 1X/DAY
     Route: 048
     Dates: end: 20100907
  28. PROCTOFOAM HC [Concomitant]
     Dosage: 1 %, 2X/DAY AS NEEDED
     Route: 061
  29. LASIX [Concomitant]
     Dosage: 40 MG, AS DIRECTED
     Route: 048
  30. LISINOPRIL [Concomitant]
     Dosage: 40 MG, 1X/DAY
     Route: 048
  31. PRAVASTATIN [Concomitant]
     Dosage: UNK
     Route: 048
     Dates: end: 20100202
  32. FLEXERIL [Concomitant]
     Dosage: 10 MG, AS NEEDED
     Route: 048
  33. ASPIRIN [Concomitant]
     Dosage: 81 MG, 1X/DAY
     Route: 048
  34. ALDACTONE [Concomitant]
     Dosage: 25 MG, 1X/DAY
     Route: 048
  35. CHANTIX [Concomitant]
     Dosage: 1 MG, 2X/DAY (DAY 1-3)
     Route: 048

REACTIONS (4)
  - PAIN IN EXTREMITY [None]
  - MUSCLE SPASMS [None]
  - DIARRHOEA [None]
  - HAEMORRHOIDS [None]
